FAERS Safety Report 4273180-9 (Version None)
Quarter: 2004Q1

REPORT INFORMATION
  Report Type: 
  Country: None (occurrence: None)
  Receive Date: 20040116
  Receipt Date: 20030117
  Transmission Date: 20041129
  Serious: Yes (Hospitalization)
  Sender: FDA-Public Use
  Company Number: US-BRISTOL-MYERS SQUIBB COMPANY-12160826

PATIENT
  Age: 81 Year
  Sex: Male
  Weight: 64 kg

DRUGS (5)
  1. COUMADIN [Suspect]
     Indication: VASCULAR OPERATION
     Route: 048
     Dates: start: 20021006, end: 20021121
  2. ZOLEDRONIC ACID [Suspect]
     Indication: OSTEOPOROTIC FRACTURE
     Dates: start: 20021030
  3. ASPIRIN [Suspect]
     Indication: VASCULAR OPERATION
     Route: 048
     Dates: start: 20021118, end: 20021121
  4. VITAMIN D [Concomitant]
  5. CALCIUM CARBONATE [Concomitant]

REACTIONS (7)
  - ANAEMIA [None]
  - DIVERTICULUM [None]
  - LOWER GASTROINTESTINAL HAEMORRHAGE [None]
  - MELAENA [None]
  - OSTEOMYELITIS [None]
  - RECTAL ULCER [None]
  - SKIN ULCER [None]
